FAERS Safety Report 6457723-2 (Version None)
Quarter: 2009Q4

REPORT INFORMATION
  Report Type: 
  Country: None (occurrence: None)
  Receive Date: 20091125
  Receipt Date: 20091117
  Transmission Date: 20100525
  Serious: Yes (Other)
  Sender: FDA-Public Use
  Company Number: DE-PFIZER INC-2009298794

PATIENT
  Age: 47 Year
  Sex: Male

DRUGS (2)
  1. NEURONTIN [Suspect]
     Indication: PAIN
     Dosage: 600 MG, 2X/DAY
     Dates: start: 20070101
  2. AMITRIPTYLINE [Suspect]
     Indication: PAIN
     Dosage: 10 MG, 1X/DAY
     Route: 048
     Dates: start: 20080101

REACTIONS (5)
  - CHROMATURIA [None]
  - GINGIVITIS [None]
  - POLLAKIURIA [None]
  - TOOTH EXTRACTION [None]
  - URINE ODOUR ABNORMAL [None]
